FAERS Safety Report 16581114 (Version 2)
Quarter: 2019Q3

REPORT INFORMATION
  Report Type: Spontaneous
  Country: AU (occurrence: AU)
  Receive Date: 20190716
  Receipt Date: 20190724
  Transmission Date: 20191004
  Serious: Yes (Life-Threatening, Hospitalization, Other)
  Sender: FDA-Public Use
  Company Number: AU-ASCEND THERAPEUTICS-2070888

PATIENT
  Age: 28 Year
  Sex: Female

DRUGS (2)
  1. ESTROGEL [Suspect]
     Active Substance: ESTRADIOL
  2. ESTRADIOL. [Suspect]
     Active Substance: ESTRADIOL

REACTIONS (5)
  - Abortion spontaneous [Not Recovered/Not Resolved]
  - Atypical haemolytic uraemic syndrome [Recovered/Resolved]
  - Pancreatitis [Recovered/Resolved]
  - Pulmonary oedema [Recovered/Resolved]
  - Maternal exposure during pregnancy [Unknown]
